FAERS Safety Report 9884656 (Version 2)
Quarter: 2014Q1

REPORT INFORMATION
  Report Type: Spontaneous
  Country: US (occurrence: US)
  Receive Date: 20140210
  Receipt Date: 20140210
  Transmission Date: 20141002
  Serious: No
  Sender: FDA-Public Use
  Company Number: US-ALLERGAN-1319838US

PATIENT
  Age: 49 Year
  Sex: Female

DRUGS (1)
  1. BOTOX [Suspect]
     Indication: MIGRAINE
     Dosage: 200 UNITS, SINGLE
     Route: 030
     Dates: start: 20131018, end: 20131018

REACTIONS (8)
  - Swelling face [Not Recovered/Not Resolved]
  - Muscle swelling [Not Recovered/Not Resolved]
  - Local swelling [Recovered/Resolved]
  - Swelling [Recovered/Resolved]
  - Tenderness [Not Recovered/Not Resolved]
  - Off label use [Unknown]
  - Headache [Recovered/Resolved]
  - Vomiting [Recovered/Resolved]
